FAERS Safety Report 9825263 (Version 1)
Quarter: 2013Q4

REPORT INFORMATION
  Report Type: Spontaneous
  Country: US (occurrence: None)
  Receive Date: 20131028
  Receipt Date: 20131028
  Transmission Date: 20140711
  Serious: Yes (Other)
  Sender: FDA-Public Use
  Company Number: 2013US001965

PATIENT
  Age: 42 Year
  Sex: Male
  Weight: 69 kg

DRUGS (11)
  1. ICLUSIG [Suspect]
     Indication: CHRONIC MYELOID LEUKAEMIA
     Route: 048
     Dates: start: 20130205, end: 20130701
  2. FLUCONAZOLE (FLUCONAZOLE) [Concomitant]
  3. POTASSIUM CHLORIDE (POTASSIUM CHLORIDE) [Concomitant]
  4. FLUDROCORTISONE (FLUDROCORTISONE) [Concomitant]
  5. PREDNISONE (PREDNISONE) [Concomitant]
  6. COREG (CARVEDILOL) [Concomitant]
  7. TAMSULOSIN (TAMSULOSIN) [Concomitant]
  8. BACTRIM (SULFAMETHOXZOLE, TRIMETHOPRIM) [Concomitant]
  9. VALACYCLOVIR HYDROCHLORIDE (VALACICLOVIR HYDROCHLORIDE) [Concomitant]
  10. LISINOPRIL (LISINOPRIL DIHYDRATE) [Concomitant]
  11. VITAMIN D (VITAMIN D) [Concomitant]

REACTIONS (1)
  - Rash erythematous [None]
